FAERS Safety Report 5047306-3 (Version None)
Quarter: 2006Q3

REPORT INFORMATION
  Report Type: 
  Country: None (occurrence: None)
  Receive Date: 20060711
  Receipt Date: 20030919
  Transmission Date: 20061208
  Serious: Yes (Life-Threatening, Hospitalization, Other)
  Sender: FDA-Public Use
  Company Number: 2003AP03335

PATIENT
  Age: 871 Month
  Sex: Female
  Weight: 50 kg

DRUGS (8)
  1. NOLVADEX [Suspect]
     Indication: BREAST CANCER
     Route: 048
     Dates: start: 19981216, end: 20030901
  2. TAKEPRON [Suspect]
     Route: 048
     Dates: end: 20030901
  3. ADALAT [Suspect]
     Route: 048
     Dates: end: 20030901
  4. CEROCRAL [Concomitant]
     Route: 048
     Dates: end: 20030901
  5. MYSLEE [Concomitant]
     Route: 048
  6. DEPAS [Concomitant]
     Route: 048
  7. SALIVEHT [Concomitant]
  8. RADIOTHERAPY [Concomitant]
     Dosage: 50 GY
     Dates: start: 19990104, end: 19990208

REACTIONS (6)
  - ACUTE MYELOID LEUKAEMIA [None]
  - BONE MARROW FAILURE [None]
  - MYELODYSPLASTIC SYNDROME [None]
  - PNEUMONIA BACTERIAL [None]
  - RASH [None]
  - SUBDURAL HAEMATOMA [None]
